FAERS Safety Report 18187218 (Version 1)
Quarter: 2020Q3

REPORT INFORMATION
  Report Type: Report from Study
  Country: EG (occurrence: EG)
  Receive Date: 20200824
  Receipt Date: 20200824
  Transmission Date: 20201103
  Serious: Yes (Other)
  Sender: FDA-Public Use
  Company Number: NVSC2020EG229620

PATIENT
  Age: 90 Year
  Sex: Female

DRUGS (2)
  1. FEMARA [Suspect]
     Active Substance: LETROZOLE
     Indication: BREAST CANCER METASTATIC
     Dosage: UNK ONCE DAILY
     Route: 048
     Dates: start: 2005, end: 2010
  2. FEMARA [Suspect]
     Active Substance: LETROZOLE
     Dosage: UNK ONCE DAILY
     Route: 048
     Dates: start: 20200303, end: 20200817

REACTIONS (4)
  - Drug ineffective [Recovered/Resolved]
  - Tumour marker increased [Unknown]
  - Metastases to bone [Not Recovered/Not Resolved]
  - Cerebral atrophy [Not Recovered/Not Resolved]

NARRATIVE: CASE EVENT DATE: 2010
